FAERS Safety Report 6187166-0 (Version None)
Quarter: 2009Q2

REPORT INFORMATION
  Report Type: 
  Country: None (occurrence: None)
  Receive Date: 20090507
  Receipt Date: 20081114
  Transmission Date: 20091009
  Serious: Yes (Hospitalization)
  Sender: FDA-Public Use
  Company Number: 597409

PATIENT
  Age: 50 Year
  Sex: Male
  Weight: 124 kg

DRUGS (4)
  1. NAPROXEN [Suspect]
     Indication: ARTHRITIS
     Dosage: 500 MG 2 PER DAY ORAL
     Route: 048
     Dates: end: 20081001
  2. REBIF [Suspect]
     Indication: MULTIPLE SCLEROSIS
     Dosage: 44 UG 3 PER 1 WEEK SUBCUTANEOUS
     Route: 058
     Dates: start: 20051117
  3. LOPRESSOR (METOPROLOL) [Concomitant]
  4. NORVASC [Concomitant]

REACTIONS (3)
  - ANAEMIA [None]
  - GASTROINTESTINAL ULCER [None]
  - HAEMORRHAGE [None]
